FAERS Safety Report 12372463 (Version 1)
Quarter: 2016Q2

REPORT INFORMATION
  Report Type: Spontaneous
  Country: US (occurrence: US)
  Receive Date: 20160516
  Receipt Date: 20160516
  Transmission Date: 20160815
  Serious: Yes (Other)
  Sender: FDA-Public Use
  Company Number: US-ROXANE LABORATORIES, INC.-2016-RO-00881RO

PATIENT
  Age: 75 Year
  Sex: Male

DRUGS (1)
  1. FLUTICASONE PROPIONATE. [Suspect]
     Active Substance: FLUTICASONE PROPIONATE
     Indication: SINUS HEADACHE
     Route: 048
     Dates: start: 201604, end: 201604

REACTIONS (4)
  - Cough [Not Recovered/Not Resolved]
  - Abdominal discomfort [Not Recovered/Not Resolved]
  - Incorrect route of drug administration [Unknown]
  - Dyspnoea [Not Recovered/Not Resolved]

NARRATIVE: CASE EVENT DATE: 201604
